FAERS Safety Report 23677332 (Version 1)
Quarter: 2024Q1

REPORT INFORMATION
  Report Type: Report from Study
  Country: GB (occurrence: GB)
  Receive Date: 20240327
  Receipt Date: 20240327
  Transmission Date: 20240410
  Serious: Yes (Hospitalization, Other)
  Sender: FDA-Public Use
  Company Number: GB-IPSEN Group, Research and Development-2024-02254

PATIENT
  Age: 63 Year
  Sex: Male
  Weight: 103 kg

DRUGS (14)
  1. NIVOLUMAB [Suspect]
     Active Substance: NIVOLUMAB
     Indication: Renal cell carcinoma
     Dosage: ONCE
     Route: 042
     Dates: start: 20240124
  2. NIVOLUMAB [Suspect]
     Active Substance: NIVOLUMAB
     Dosage: ONCE
     Route: 042
     Dates: start: 20240304
  3. CABOZANTINIB [Suspect]
     Active Substance: CABOZANTINIB
     Indication: Renal cell carcinoma
     Route: 048
     Dates: start: 20240124, end: 20240204
  4. CABOZANTINIB [Suspect]
     Active Substance: CABOZANTINIB
     Route: 048
     Dates: start: 20240220, end: 20240319
  5. CABOZANTINIB [Suspect]
     Active Substance: CABOZANTINIB
     Dosage: 40 MG/20 MG ALTERNATE DAYS
     Route: 048
     Dates: start: 20240220
  6. COCODAMOL [Concomitant]
     Active Substance: ACETAMINOPHEN\CODEINE PHOSPHATE
     Indication: Toothache
     Route: 048
     Dates: start: 20240201
  7. LACTULOSE [Concomitant]
     Active Substance: LACTULOSE
     Indication: Constipation
     Route: 048
     Dates: start: 202402
  8. ACETAMINOPHEN [Concomitant]
     Active Substance: ACETAMINOPHEN
     Indication: Pain
     Route: 048
     Dates: start: 20240212
  9. ACETAMINOPHEN [Concomitant]
     Active Substance: ACETAMINOPHEN
     Indication: Pyrexia
  10. PROPRANOLOL [Concomitant]
     Active Substance: PROPRANOLOL HYDROCHLORIDE
     Indication: Anxiety
     Route: 048
     Dates: start: 20220713
  11. LANSOPRAZOLE [Concomitant]
     Active Substance: LANSOPRAZOLE
     Indication: Hiatus hernia
     Route: 048
     Dates: start: 20040409
  12. PIPERACILLIN SODIUM\TAZOBACTAM SODIUM [Concomitant]
     Active Substance: PIPERACILLIN SODIUM\TAZOBACTAM SODIUM
     Indication: Pyrexia
     Dosage: 4,5 GRAM TDS
     Route: 042
     Dates: start: 20240212, end: 20240213
  13. DEXAMETHASONE [Concomitant]
     Active Substance: DEXAMETHASONE
     Indication: Decreased appetite
     Route: 048
     Dates: start: 20240212
  14. DEXAMETHASONE [Concomitant]
     Active Substance: DEXAMETHASONE
     Route: 048
     Dates: start: 20240311

REACTIONS (8)
  - Aspartate aminotransferase increased [Not Recovered/Not Resolved]
  - Alanine aminotransferase increased [Recovered/Resolved]
  - Hypophosphataemia [Recovered/Resolved]
  - Rash [Recovered/Resolved]
  - Fatigue [Not Recovered/Not Resolved]
  - Hypersensitivity [Recovered/Resolved with Sequelae]
  - Stomatitis [Not Recovered/Not Resolved]
  - Palmar-plantar erythrodysaesthesia syndrome [Not Recovered/Not Resolved]

NARRATIVE: CASE EVENT DATE: 20240125
